FAERS Safety Report 5238331-8 (Version None)
Quarter: 2007Q1

REPORT INFORMATION
  Report Type: 
  Country: None (occurrence: None)
  Receive Date: 20061208
  Receipt Date: 20050301
  Transmission Date: 20070707
  Serious: Yes (Other)
  Sender: FDA-Public Use
  Company Number: 2005UW03304

PATIENT
  Age: 52 Year
  Sex: Female
  Weight: 64.41 kg

DRUGS (3)
  1. CRESTOR [Suspect]
     Indication: BLOOD CHOLESTEROL INCREASED
     Dosage: 5 MG DAILY PO
     Route: 048
  2. ASPIRIN [Concomitant]
  3. SYNTHROID [Concomitant]

REACTIONS (2)
  - DISCOMFORT [None]
  - SWELLING [None]
